FAERS Safety Report 17244361 (Version 3)
Quarter: 2020Q3

REPORT INFORMATION
  Report Type: Spontaneous
  Country: US (occurrence: US)
  Receive Date: 20200107
  Receipt Date: 20200924
  Transmission Date: 20201102
  Serious: Yes (Other)
  Sender: FDA-Public Use
  Company Number: US-GILEAD-2019-0444939

PATIENT
  Age: 57 Year
  Sex: Female
  Weight: 86.17 kg

DRUGS (51)
  1. FLUCONAZOLE. [Concomitant]
     Active Substance: FLUCONAZOLE
  2. CORTISONE [Concomitant]
     Active Substance: CORTISONE
  3. LEVOTHYROXINE. [Concomitant]
     Active Substance: LEVOTHYROXINE
  4. IBUPROFEN. [Concomitant]
     Active Substance: IBUPROFEN
  5. CIPRO HC [Concomitant]
     Active Substance: CIPROFLOXACIN HYDROCHLORIDE\HYDROCORTISONE
  6. PROAIR HFA [Concomitant]
     Active Substance: ALBUTEROL SULFATE
  7. CYCLOBENZAPRIN [Concomitant]
     Active Substance: CYCLOBENZAPRINE
  8. LOSARTAN. [Concomitant]
     Active Substance: LOSARTAN
  9. ACETAMINOPHEN. [Concomitant]
     Active Substance: ACETAMINOPHEN
  10. ATORVASTATIN [Concomitant]
     Active Substance: ATORVASTATIN
  11. PREDNISONE. [Concomitant]
     Active Substance: PREDNISONE
  12. PERMETHRIN. [Concomitant]
     Active Substance: PERMETHRIN
  13. TRAMADOL. [Concomitant]
     Active Substance: TRAMADOL
  14. ZOFRAN [Concomitant]
     Active Substance: ONDANSETRON HYDROCHLORIDE
  15. TRUVADA [Suspect]
     Active Substance: EMTRICITABINE\TENOFOVIR DISOPROXIL FUMARATE
     Dosage: UNK
     Route: 048
     Dates: start: 20200420, end: 20200730
  16. BACTRIM [Concomitant]
     Active Substance: SULFAMETHOXAZOLE\TRIMETHOPRIM
  17. HYDROXYZINE [Concomitant]
     Active Substance: HYDROXYZINE HYDROCHLORIDE
  18. CHERATUSSIN [Concomitant]
     Active Substance: AMMONIUM CHLORIDE\DEXTROMETHORPHAN\SODIUM CITRATE
  19. PRAVASTATIN. [Concomitant]
     Active Substance: PRAVASTATIN
  20. XANAX [Concomitant]
     Active Substance: ALPRAZOLAM
  21. ZOLOFT [Concomitant]
     Active Substance: SERTRALINE HYDROCHLORIDE
  22. BUSPIRONE [Concomitant]
     Active Substance: BUSPIRONE HYDROCHLORIDE
  23. LEVBID [Concomitant]
     Active Substance: HYOSCYAMINE SULFATE
  24. BUPROPION. [Concomitant]
     Active Substance: BUPROPION
  25. CEPHALEXINE [Concomitant]
     Active Substance: CEPHALEXIN
  26. LEVOFLOXACIN. [Concomitant]
     Active Substance: LEVOFLOXACIN
  27. TRUVADA [Suspect]
     Active Substance: EMTRICITABINE\TENOFOVIR DISOPROXIL FUMARATE
     Indication: HIV INFECTION
     Dosage: UNK
     Route: 048
     Dates: start: 2004, end: 2005
  28. KETOROLAC [Concomitant]
     Active Substance: KETOROLAC TROMETHAMINE
  29. ASPIRIN [ACETYLSALICYLIC ACID] [Concomitant]
     Active Substance: ASPIRIN
  30. NEOMYCIN. [Concomitant]
     Active Substance: NEOMYCIN
  31. METRONIDAZOLE. [Concomitant]
     Active Substance: METRONIDAZOLE
  32. CLINDAMYCIN. [Concomitant]
     Active Substance: CLINDAMYCIN
  33. MECLIZINE [Concomitant]
     Active Substance: MECLIZINE HYDROCHLORIDE
  34. METOPROLOL. [Concomitant]
     Active Substance: METOPROLOL
  35. COMBIVIR [Concomitant]
     Active Substance: LAMIVUDINE\ZIDOVUDINE
  36. RETROVIR [Concomitant]
     Active Substance: ZIDOVUDINE
  37. SUSTIVA [Concomitant]
     Active Substance: EFAVIRENZ
  38. DESYREL [Concomitant]
     Active Substance: TRAZODONE HYDROCHLORIDE
  39. ZYVOX [Concomitant]
     Active Substance: LINEZOLID
  40. ATRIPLA [Suspect]
     Active Substance: EFAVIRENZ\EMTRICITABINE\TENOFOVIR DISOPROXIL FUMARATE
     Indication: HIV INFECTION
     Dosage: UNK
     Route: 048
     Dates: start: 2005, end: 201908
  41. AMITRIPTYLINE [Concomitant]
     Active Substance: AMITRIPTYLINE
  42. TRIAMCINOLONE [Concomitant]
     Active Substance: TRIAMCINOLONE
  43. NAPROXEN. [Concomitant]
     Active Substance: NAPROXEN
  44. PROZAC [Concomitant]
     Active Substance: FLUOXETINE HYDROCHLORIDE
  45. DICYCLOMINE HCL [Concomitant]
     Active Substance: DICYCLOMINE HYDROCHLORIDE
  46. FLONASE [Concomitant]
     Active Substance: FLUTICASONE PROPIONATE
  47. AMBIEN [Concomitant]
     Active Substance: ZOLPIDEM TARTRATE
  48. LORATADINE. [Concomitant]
     Active Substance: LORATADINE
  49. DILAUDID [Concomitant]
     Active Substance: HYDROMORPHONE HYDROCHLORIDE
  50. SUDAFED [Concomitant]
     Active Substance: PSEUDOEPHEDRINE HYDROCHLORIDE
  51. DOXYCYCLINE. [Concomitant]
     Active Substance: DOXYCYCLINE

REACTIONS (10)
  - Hand fracture [Unknown]
  - Tooth loss [Not Recovered/Not Resolved]
  - Economic problem [Unknown]
  - Bone density decreased [Unknown]
  - Anxiety [Unknown]
  - Hand fracture [Unknown]
  - Hand fracture [Recovered/Resolved]
  - Anhedonia [Unknown]
  - Emotional distress [Unknown]
  - Pain [Unknown]

NARRATIVE: CASE EVENT DATE: 2016
